FAERS Safety Report 9524941 (Version 1)
Quarter: 2013Q3

REPORT INFORMATION
  Report Type: Spontaneous
  Country: US (occurrence: US)
  Receive Date: 20130916
  Receipt Date: 20130916
  Transmission Date: 20140515
  Serious: No
  Sender: FDA-Public Use
  Company Number: US-BRACCO-008823

PATIENT
  Sex: Male

DRUGS (2)
  1. CYSTOGRAFIN [Suspect]
     Indication: DIAGNOSTIC PROCEDURE
     Route: 042
     Dates: start: 20121108, end: 20121108
  2. CYSTOGRAFIN [Suspect]
     Indication: PRODUCT USED FOR UNKNOWN INDICATION
     Route: 042
     Dates: start: 20121108, end: 20121108

REACTIONS (1)
  - Drug administration error [Unknown]
